FAERS Safety Report 7040131-3 (Version None)
Quarter: 2010Q4

REPORT INFORMATION
  Report Type: 
  Country: None (occurrence: None)
  Receive Date: 20101012
  Receipt Date: 20101003
  Transmission Date: 20110411
  Serious: Yes (Other)
  Sender: FDA-Public Use
  Company Number: PHHY2010CR65634

PATIENT
  Sex: Female

DRUGS (3)
  1. FORADIL [Suspect]
     Indication: ASTHMA
     Dosage: 12 UG, BID
  2. FEXOFENADINE HCL [Concomitant]
  3. BECLOMETHASONE DIPROPIONATE [Concomitant]

REACTIONS (4)
  - LASER THERAPY [None]
  - OPHTHALMIC FLUID DRAINAGE [None]
  - RETINAL DETACHMENT [None]
  - RETINAL OPERATION [None]
